FAERS Safety Report 9373408 (Version 1)
Quarter: 2013Q2

REPORT INFORMATION
  Report Type: Spontaneous
  Country: GR (occurrence: GR)
  Receive Date: 20130627
  Receipt Date: 20130627
  Transmission Date: 20140414
  Serious: Yes (Other)
  Sender: FDA-Public Use
  Company Number: GR-PFIZER INC-2013190410

PATIENT
  Age: 60 Year
  Sex: Female

DRUGS (3)
  1. LIPITOR [Suspect]
     Dosage: 20 MG, DAILY
  2. IMIGRAN [Concomitant]
  3. T4 [Concomitant]

REACTIONS (3)
  - Hypertension [Unknown]
  - Blister [Unknown]
  - Pruritus [Unknown]
